FAERS Safety Report 24817166 (Version 2)
Quarter: 2025Q1

REPORT INFORMATION
  Report Type: Report from Study
  Country: US (occurrence: US)
  Receive Date: 20250108
  Receipt Date: 20250317
  Transmission Date: 20250408
  Serious: Yes (Hospitalization, Other)
  Sender: NOVARTIS
  Company Number: US-002147023-NVSC2025US001916

PATIENT
  Sex: Female

DRUGS (1)
  1. KESIMPTA [Suspect]
     Active Substance: OFATUMUMAB
     Indication: Product used for unknown indication
     Route: 058

REACTIONS (7)
  - Multiple sclerosis relapse [Unknown]
  - Restless legs syndrome [Unknown]
  - Feeling abnormal [Unknown]
  - Muscle spasms [Unknown]
  - Headache [Unknown]
  - Pain in extremity [Unknown]
  - Pain [Unknown]
